FAERS Safety Report 9281859 (Version 1)
Quarter: 2013Q2

REPORT INFORMATION
  Report Type: Spontaneous
  Country: US (occurrence: US)
  Receive Date: 20130510
  Receipt Date: 20130510
  Transmission Date: 20140414
  Serious: No
  Sender: FDA-Public Use
  Company Number: US-009507513-1305USA004398

PATIENT
  Age: 30 Year
  Sex: Female

DRUGS (1)
  1. GANIRELIX ACETATE INJECTION [Suspect]
     Indication: INFERTILITY
     Dosage: 250MCG/0.5ML  1 TIME PER DAY FOR 5 TO 7 DAYS
     Route: 058
     Dates: start: 20121211

REACTIONS (1)
  - Injection site irritation [Unknown]
